FAERS Safety Report 7892478-6 (Version None)
Quarter: 2011Q4

REPORT INFORMATION
  Report Type: 
  Country: None (occurrence: None)
  Receive Date: 20111104
  Receipt Date: 20111027
  Transmission Date: 20120403
  Serious: Yes (Other)
  Sender: FDA-Public Use
  Company Number: FI-JNJFOC-20111008599

PATIENT
  Age: 22 Year
  Sex: Male

DRUGS (1)
  1. CONCERTA [Suspect]
     Indication: ATTENTION DEFICIT/HYPERACTIVITY DISORDER
     Route: 048
     Dates: start: 20111011

REACTIONS (10)
  - HEART RATE INCREASED [None]
  - ANXIETY [None]
  - VOMITING [None]
  - FEELING ABNORMAL [None]
  - HYPERACUSIS [None]
  - DYSPEPSIA [None]
  - DECREASED APPETITE [None]
  - PALPITATIONS [None]
  - NAUSEA [None]
  - DYSPNOEA [None]
